FAERS Safety Report 19501572 (Version 1)
Quarter: 2021Q3

REPORT INFORMATION
  Report Type: Spontaneous
  Country: FR (occurrence: FR)
  Receive Date: 20210707
  Receipt Date: 20210707
  Transmission Date: 20211014
  Serious: Yes (Life-Threatening)
  Sender: FDA-Public Use
  Company Number: FR-CHIESI-2021CHF03291

PATIENT
  Age: 1 Day
  Sex: Male

DRUGS (9)
  1. CUROSURF [Suspect]
     Active Substance: PORACTANT ALFA
     Indication: PRODUCT USED FOR UNKNOWN INDICATION
     Dosage: UNK
     Route: 007
     Dates: start: 20210621, end: 20210621
  2. KETAMINE [KETAMINE HYDROCHLORIDE] [Concomitant]
     Active Substance: KETAMINE HYDROCHLORIDE
     Indication: PRODUCT USED FOR UNKNOWN INDICATION
     Dosage: 1 DOSAGE FORM
     Dates: start: 20210621, end: 20210621
  3. PROPOFOL LIPURO [Concomitant]
     Active Substance: PROPOFOL
     Dosage: 1 DOSAGE FORM
     Dates: start: 20210621, end: 20210621
  4. CAFFEINE. [Concomitant]
     Active Substance: CAFFEINE
     Indication: PREMEDICATION
     Dosage: UNK
  5. MEDIALIPIDE [GLYCINE MAX SEED OIL;MEDIUM?CHAIN TRIGLYCERIDES] [Concomitant]
     Indication: PRODUCT USED FOR UNKNOWN INDICATION
     Dosage: 1 DOSAGE FORM
     Dates: start: 20210621, end: 20210621
  6. MEDIALIPIDE [GLYCINE MAX SEED OIL;MEDIUM?CHAIN TRIGLYCERIDES] [Concomitant]
     Dosage: 1 DOSAGE FORM
     Dates: start: 20210621, end: 20210621
  7. PROPOFOL LIPURO [Concomitant]
     Active Substance: PROPOFOL
     Indication: PRODUCT USED FOR UNKNOWN INDICATION
     Dosage: 1 DOSAGE FORM
     Dates: start: 20210621, end: 20210621
  8. KETAMINE [KETAMINE HYDROCHLORIDE] [Concomitant]
     Active Substance: KETAMINE HYDROCHLORIDE
     Dosage: 1 DOSAGE FORM
     Dates: start: 20210621, end: 20210621
  9. ATROPINE. [Concomitant]
     Active Substance: ATROPINE
     Indication: PREMEDICATION
     Dosage: UNK

REACTIONS (1)
  - Neonatal hypoxia [Recovered/Resolved]

NARRATIVE: CASE EVENT DATE: 20210621
